FAERS Safety Report 12855094 (Version 5)
Quarter: 2017Q1

REPORT INFORMATION
  Report Type: Report from Study
  Country: US (occurrence: US)
  Receive Date: 20161017
  Receipt Date: 20170303
  Transmission Date: 20170428
  Serious: Yes (Hospitalization, Other)
  Sender: FDA-Public Use
  Company Number: US-GILEAD-2016-0238653

PATIENT
  Age: 52 Year
  Sex: Female
  Weight: 63.49 kg

DRUGS (24)
  1. AMBRISENTAN [Suspect]
     Active Substance: AMBRISENTAN
     Indication: PULMONARY ARTERIAL HYPERTENSION
     Dosage: 10 MG, QD
     Route: 048
     Dates: start: 20141022, end: 201609
  2. ATIVAN [Concomitant]
     Active Substance: LORAZEPAM
  3. OXYGEN. [Concomitant]
     Active Substance: OXYGEN
  4. POTASSIUM CHLORIDE. [Concomitant]
     Active Substance: POTASSIUM CHLORIDE
  5. ALDACTONE [Concomitant]
     Active Substance: SPIRONOLACTONE
  6. AMBRISENTAN [Suspect]
     Active Substance: AMBRISENTAN
     Dosage: 10 MG, QD
     Route: 048
  7. ADCIRCA [Concomitant]
     Active Substance: TADALAFIL
  8. VENTOLIN HFA [Concomitant]
     Active Substance: ALBUTEROL SULFATE
  9. PROCARDIA [Concomitant]
     Active Substance: NIFEDIPINE
  10. POTASSIUM BICARBONATE. [Concomitant]
     Active Substance: POTASSIUM BICARBONATE
  11. PRILOSEC [Concomitant]
     Active Substance: OMEPRAZOLE MAGNESIUM
  12. OXYCODONE [Concomitant]
     Active Substance: OXYCODONE
  13. TYVASO [Suspect]
     Active Substance: TREPROSTINIL
     Indication: PULMONARY HYPERTENSION
     Dosage: 72 UG, QID
     Route: 055
     Dates: start: 20140708
  14. BERAPROST SODIUM [Suspect]
     Active Substance: BERAPROST SODIUM
     Indication: PULMONARY ARTERIAL HYPERTENSION
     Dosage: 2 TAB, QID
     Route: 048
     Dates: start: 20141106
  15. ASPIRIN                            /00002701/ [Concomitant]
     Active Substance: ASPIRIN
  16. EPIPEN [Concomitant]
     Active Substance: EPINEPHRINE
  17. FERROUS SULFATE. [Concomitant]
     Active Substance: FERROUS SULFATE
  18. TORSEMIDE. [Concomitant]
     Active Substance: TORSEMIDE
  19. AMBRISENTAN [Suspect]
     Active Substance: AMBRISENTAN
     Indication: SCLERODERMA
     Dosage: UNK
     Route: 048
     Dates: start: 201609
  20. TYVASO [Suspect]
     Active Substance: TREPROSTINIL
     Dosage: 18-72 UG QID
     Route: 055
     Dates: start: 20141201
  21. TESSALON [Concomitant]
     Active Substance: BENZONATATE
  22. VITAMIN D3 [Concomitant]
     Active Substance: CHOLECALCIFEROL
  23. IBUPROFEN. [Concomitant]
     Active Substance: IBUPROFEN
  24. VOLTAREN [Concomitant]
     Active Substance: DICLOFENAC SODIUM

REACTIONS (11)
  - Dyspnoea [Unknown]
  - Catheterisation cardiac [Unknown]
  - Non-cardiac chest pain [Recovered/Resolved]
  - Pericarditis [Recovered/Resolved]
  - Malaise [Unknown]
  - Insomnia [Not Recovered/Not Resolved]
  - Depression [Not Recovered/Not Resolved]
  - Fluid overload [Recovered/Resolved]
  - Syncope [Unknown]
  - Oedema peripheral [Recovered/Resolved]
  - Palpitations [Not Recovered/Not Resolved]

NARRATIVE: CASE EVENT DATE: 20160811
